FAERS Safety Report 12573666 (Version 1)
Quarter: 2016Q3

REPORT INFORMATION
  Report Type: Report from Study
  Country: US (occurrence: US)
  Receive Date: 20160720
  Receipt Date: 20160720
  Transmission Date: 20161109
  Serious: Yes (Hospitalization, Other)
  Sender: FDA-Public Use
  Company Number: US-BAYER-2016-090085

PATIENT
  Age: 68 Year
  Sex: Female
  Weight: 88.44 kg

DRUGS (5)
  1. ADEMPAS [Suspect]
     Active Substance: RIOCIGUAT
     Indication: PULMONARY HYPERTENSION
     Dosage: 0.5 MG, TID
     Route: 048
  2. ADEMPAS [Suspect]
     Active Substance: RIOCIGUAT
     Indication: PULMONARY HYPERTENSION
     Dosage: 0.5 MG, TID
     Route: 048
  3. ADEMPAS [Suspect]
     Active Substance: RIOCIGUAT
     Indication: PULMONARY HYPERTENSION
     Dosage: UNK
     Dates: start: 20160421
  4. ADEMPAS [Suspect]
     Active Substance: RIOCIGUAT
     Indication: PULMONARY HYPERTENSION
     Dosage: 0.5 MG, TID
     Route: 048
  5. WARFARIN [Concomitant]
     Active Substance: WARFARIN
     Dosage: UNK

REACTIONS (11)
  - Diarrhoea [Unknown]
  - Feeling hot [None]
  - Lower limb fracture [Unknown]
  - Rash macular [None]
  - Delirium [Unknown]
  - Chest pain [Unknown]
  - Oedema [None]
  - Oedema peripheral [Unknown]
  - Hypotension [Unknown]
  - Oxygen saturation decreased [Unknown]
  - Pain in extremity [None]

NARRATIVE: CASE EVENT DATE: 20160710
